FAERS Safety Report 17187818 (Version 3)
Quarter: 2021Q1

REPORT INFORMATION
  Report Type: Spontaneous
  Country: PK (occurrence: PK)
  Receive Date: 20191221
  Receipt Date: 20210321
  Transmission Date: 20210419
  Serious: Yes (Other)
  Sender: FDA-Public Use
  Company Number: PK-AMGEN-PAKSP2019211859

PATIENT
  Weight: 72 kg

DRUGS (9)
  1. ENBREL [Suspect]
     Active Substance: ETANERCEPT
     Indication: RHEUMATOID ARTHRITIS
     Dosage: 50 MG, WEEKLY
     Route: 058
  2. LOPRIN [Concomitant]
     Active Substance: ASPIRIN
     Dosage: UNK
  3. NEXIUM [Concomitant]
     Active Substance: ESOMEPRAZOLE MAGNESIUM
     Dosage: UNK
  4. TRYPTAL [Concomitant]
     Dosage: 25 MG, UNK
  5. RISEK [OMEPRAZOLE] [Concomitant]
     Dosage: 20 MG, DAILY
  6. CELBEXX [Concomitant]
     Dosage: 200 MG, 2X/DAY
  7. FOLIC ACID. [Concomitant]
     Active Substance: FOLIC ACID
     Dosage: TAKE 2 TABLETS ON EVERY THURSDAY
  8. METHOTREXATE. [Concomitant]
     Active Substance: METHOTREXATE
     Dosage: 100 MG, WEEKLY
  9. DELTACORTRIL [PREDNISOLONE ACETATE] [Concomitant]
     Dosage: 5 MG, DAILY

REACTIONS (3)
  - Cerebrovascular accident [Unknown]
  - Musculoskeletal stiffness [Unknown]
  - Joint swelling [Unknown]

NARRATIVE: CASE EVENT DATE: 20191127
